FAERS Safety Report 8446090-0 (Version None)
Quarter: 2012Q2

REPORT INFORMATION
  Report Type: 
  Country: None (occurrence: None)
  Receive Date: 20120611
  Receipt Date: 20120522
  Transmission Date: 20120825
  Serious: Yes (Life-Threatening)
  Sender: FDA-Public Use
  Company Number: 001248112A

PATIENT
  Sex: Female

DRUGS (1)
  1. PROACTIV 39 DAY KIT [Suspect]
     Indication: ACNE
     Dosage: DAILY DERMAL
     Dates: start: 20120210, end: 20120302

REACTIONS (5)
  - GENERALISED ERYTHEMA [None]
  - ASTHMA [None]
  - PRURITUS [None]
  - DYSPNOEA [None]
  - RASH [None]
